FAERS Safety Report 25484456 (Version 1)
Quarter: 2025Q2

REPORT INFORMATION
  Report Type: Spontaneous
  Country: US (occurrence: None)
  Receive Date: 20250626
  Receipt Date: 20250626
  Transmission Date: 20250716
  Serious: Yes (Other)
  Sender: FDA-CTU
  Company Number: None

PATIENT
  Age: 74 Year
  Sex: Female

DRUGS (1)
  1. XDEMVY [Suspect]
     Active Substance: LOTILANER
     Indication: Ocular demodicosis
     Dosage: OTHER QUANTITY : 1GTT IN OU;?FREQUENCY : TWICE A DAY;?
     Route: 047
     Dates: start: 20250502, end: 20250516

REACTIONS (3)
  - Ocular hyperaemia [None]
  - Periorbital swelling [None]
  - Hypersensitivity [None]

NARRATIVE: CASE EVENT DATE: 20250502
